FAERS Safety Report 23580315 (Version 1)
Quarter: 2024Q1

REPORT INFORMATION
  Report Type: Spontaneous
  Country: CH (occurrence: CH)
  Receive Date: 20240229
  Receipt Date: 20240229
  Transmission Date: 20240409
  Serious: Yes (Other)
  Sender: FDA-Public Use
  Company Number: 24_00028482(0)

PATIENT
  Age: 72 Year
  Sex: Female

DRUGS (6)
  1. DEXMEDETOMIDINE HYDROCHLORIDE [Suspect]
     Active Substance: DEXMEDETOMIDINE HYDROCHLORIDE
     Indication: Anaesthesia procedure
     Dosage: 200 MICROGRAM, 1 TOTAL
     Route: 042
     Dates: start: 20240205, end: 20240205
  2. FENTANYL [Suspect]
     Active Substance: FENTANYL\FENTANYL CITRATE
     Indication: Anaesthesia procedure
     Dosage: 25 MICROGRAM, 1 TOTAL
     Route: 042
     Dates: start: 20240205, end: 20240205
  3. CALCIUM CHLORIDE\POTASSIUM CHLORIDE [Suspect]
     Active Substance: CALCIUM CHLORIDE\POTASSIUM CHLORIDE
     Indication: Anaesthesia procedure
     Dosage: 500 ML, 1 TOTAL
     Route: 042
     Dates: start: 20240205, end: 20240205
  4. ACETAZOLAMIDE SODIUM [Suspect]
     Active Substance: ACETAZOLAMIDE SODIUM
     Indication: Product used for unknown indication
     Dosage: IN TOTAL NOT CLEAR IF PATIENT RECEIVED IT OR NOT, BECAUSE IT IS NOT TICKED ON THE RECORD (500 MG, 1
     Route: 042
     Dates: start: 20240205, end: 20240205
  5. IRBESARTAN [Concomitant]
     Active Substance: IRBESARTAN
     Indication: Product used for unknown indication
     Dosage: UNK
     Route: 065
  6. UNSPECIFIED INGREDIENT [Concomitant]
     Active Substance: UNSPECIFIED INGREDIENT
     Indication: Product used for unknown indication
     Dosage: UNK
     Route: 065

REACTIONS (3)
  - Oedema peripheral [Recovering/Resolving]
  - Extravasation [Recovered/Resolved]
  - Monoplegia [Recovered/Resolved]

NARRATIVE: CASE EVENT DATE: 20240205
